FAERS Safety Report 9697553 (Version 3)
Quarter: 2013Q4

REPORT INFORMATION
  Report Type: Spontaneous
  Country: JP (occurrence: JP)
  Receive Date: 20131120
  Receipt Date: 20131224
  Transmission Date: 20140711
  Serious: Yes (Death, Other)
  Sender: FDA-Public Use
  Company Number: JP-UCBSA-102683

PATIENT
  Age: 71 Year
  Sex: Male

DRUGS (4)
  1. E KEPPRA [Suspect]
     Indication: EPILEPSY
     Dosage: 500MG DOSAGE STRENGTH
     Route: 048
     Dates: start: 201309, end: 20131111
  2. LYRICA [Concomitant]
     Route: 048
     Dates: start: 20131102, end: 20131111
  3. CELECOX [Concomitant]
     Route: 048
     Dates: start: 20131102, end: 20131111
  4. RINDERON [Concomitant]
     Route: 048
     Dates: start: 20131102, end: 20131111

REACTIONS (3)
  - Non-small cell lung cancer [Fatal]
  - Metastasis [Fatal]
  - White blood cell count decreased [Not Recovered/Not Resolved]
